APPROVED DRUG PRODUCT: CARBINOXAMINE MALEATE
Active Ingredient: CARBINOXAMINE MALEATE
Strength: 6MG
Dosage Form/Route: TABLET;ORAL
Application: A215476 | Product #001 | TE Code: AA
Applicant: LEADING PHARMA LLC
Approved: Dec 19, 2024 | RLD: No | RS: No | Type: RX